FAERS Safety Report 12313943 (Version 1)
Quarter: 2016Q2

REPORT INFORMATION
  Report Type: Spontaneous
  Country: US (occurrence: None)
  Receive Date: 20160427
  Receipt Date: 20160427
  Transmission Date: 20160815
  Serious: No
  Sender: FDA-Public Use
  Company Number: None

PATIENT
  Sex: Female

DRUGS (1)
  1. IBRANCE [Suspect]
     Active Substance: PALBOCICLIB
     Indication: BREAST CANCER
     Route: 048
     Dates: start: 20150412

REACTIONS (4)
  - Peripheral swelling [None]
  - Neck pain [None]
  - Headache [None]
  - Sensory disturbance [None]

NARRATIVE: CASE EVENT DATE: 2016
